FAERS Safety Report 19905418 (Version 1)
Quarter: 2021Q3

REPORT INFORMATION
  Report Type: Spontaneous
  Country: US (occurrence: US)
  Receive Date: 20210930
  Receipt Date: 20210930
  Transmission Date: 20211014
  Serious: No
  Sender: FDA-Public Use
  Company Number: None

PATIENT

DRUGS (2)
  1. LASIX [Suspect]
     Active Substance: FUROSEMIDE
  2. CARDIZEM [Suspect]
     Active Substance: DILTIAZEM HYDROCHLORIDE

REACTIONS (9)
  - Incorrect dose administered [None]
  - Wrong technique in product usage process [None]
  - Drug dose titration not performed [None]
  - Pleural effusion [None]
  - Discomfort [None]
  - Oxygen saturation decreased [None]
  - Heart rate increased [None]
  - Atrial fibrillation [None]
  - Dyspnoea [None]
